FAERS Safety Report 23143916 (Version 1)
Quarter: 2023Q4

REPORT INFORMATION
  Report Type: Other
  Country: JP (occurrence: JP)
  Receive Date: 20231103
  Receipt Date: 20231103
  Transmission Date: 20240109
  Serious: No
  Sender: FDA-Public Use
  Company Number: JP-SCALL-2023-JPN-260725

PATIENT
  Age: 34 Year
  Sex: Male

DRUGS (1)
  1. DUTASTERIDE [Suspect]
     Active Substance: DUTASTERIDE
     Indication: Androgenetic alopecia
     Route: 048

REACTIONS (1)
  - Asthenospermia [Recovered/Resolved]

NARRATIVE: CASE EVENT DATE: 20181201
